FAERS Safety Report 18663424 (Version 2)
Quarter: 2021Q1

REPORT INFORMATION
  Report Type: Report from Study
  Country: US (occurrence: US)
  Receive Date: 20201224
  Receipt Date: 20210118
  Transmission Date: 20210419
  Serious: Yes (Hospitalization, Other)
  Sender: FDA-Public Use
  Company Number: US-SHIRE-US202023713

PATIENT
  Sex: Female

DRUGS (4)
  1. TEDUGLUTIDE [Suspect]
     Active Substance: TEDUGLUTIDE
     Indication: SHORT-BOWEL SYNDROME
     Dosage: 1.12 MILLIGRAM, 1X/DAY:QD
     Route: 058
     Dates: start: 20191117
  2. TEDUGLUTIDE [Suspect]
     Active Substance: TEDUGLUTIDE
     Indication: SHORT-BOWEL SYNDROME
     Dosage: 1.12 MILLIGRAM, 1X/DAY:QD
     Route: 058
     Dates: start: 20191117
  3. TEDUGLUTIDE [Suspect]
     Active Substance: TEDUGLUTIDE
     Indication: SHORT-BOWEL SYNDROME
     Dosage: 1.12 MILLIGRAM, 1X/DAY:QD
     Route: 058
     Dates: start: 20191117
  4. TEDUGLUTIDE [Suspect]
     Active Substance: TEDUGLUTIDE
     Indication: SHORT-BOWEL SYNDROME
     Dosage: 1.12 MILLIGRAM, 1X/DAY:QD
     Route: 058
     Dates: start: 20191117

REACTIONS (3)
  - Abdominal pain upper [Unknown]
  - Syncope [Unknown]
  - Hospitalisation [Unknown]
